FAERS Safety Report 7060855-1 (Version None)
Quarter: 2010Q4

REPORT INFORMATION
  Report Type: 
  Country: None (occurrence: None)
  Receive Date: 20101025
  Receipt Date: 20101012
  Transmission Date: 20110411
  Serious: Yes (Hospitalization)
  Sender: FDA-Public Use
  Company Number: US-ELI_LILLY_AND_COMPANY-US201005005777

PATIENT
  Sex: Female

DRUGS (13)
  1. FORTEO [Suspect]
     Indication: OSTEOPOROSIS
     Dosage: UNK, UNK
     Dates: start: 20100301
  2. DEPAKOTE [Concomitant]
  3. LEVOTHYROXINE [Concomitant]
  4. BUMEX [Concomitant]
  5. COZAAR [Concomitant]
  6. DIAZEPAM [Concomitant]
  7. SPIRIVA [Concomitant]
  8. SYMBICORT [Concomitant]
  9. VENTOLIN [Concomitant]
  10. PLAVIX [Concomitant]
  11. OMEPRAZOLE [Concomitant]
  12. VITAMIN TAB [Concomitant]
  13. ASPIRIN [Concomitant]

REACTIONS (9)
  - ADVERSE EVENT [None]
  - BALANCE DISORDER [None]
  - BLOOD PRESSURE INCREASED [None]
  - DIZZINESS [None]
  - FALL [None]
  - HYPOTENSION [None]
  - MEMORY IMPAIRMENT [None]
  - TREMOR [None]
  - WEIGHT DECREASED [None]
